FAERS Safety Report 19827520 (Version 3)
Quarter: 2022Q1

REPORT INFORMATION
  Report Type: Spontaneous
  Country: ES (occurrence: ES)
  Receive Date: 20210914
  Receipt Date: 20220120
  Transmission Date: 20220424
  Serious: Yes (Life-Threatening, Hospitalization, Other)
  Sender: FDA-Public Use
  Company Number: ES-ACCORD-210590

PATIENT
  Age: 67 Year
  Sex: Male

DRUGS (16)
  1. DASATINIB [Suspect]
     Active Substance: DASATINIB
     Indication: Blast cell crisis
     Dosage: INITIALLY AND 140 MG THEREAFTER, TEMPORARY WITHDRAWAL OF DASATINIB WITH SUBSEQUENT DOSE ESCALATION
  2. DASATINIB [Suspect]
     Active Substance: DASATINIB
     Indication: Blast crisis in myelogenous leukaemia
     Dosage: 140 MILLIGRAM
     Route: 065
  3. DASATINIB [Suspect]
     Active Substance: DASATINIB
     Indication: Leukaemia cutis
     Dosage: 100 MILLIGRAM
     Route: 065
  4. DASATINIB [Suspect]
     Active Substance: DASATINIB
     Dosage: 100 MILLIGRAM, QD
     Route: 065
  5. FLUDARABINE [Suspect]
     Active Substance: FLUDARABINE PHOSPHATE
     Indication: Blast cell crisis
     Dosage: 30 MILLIGRAM/SQ. METER, CYCLE (ON DAYS 1-4), CYCLE
     Route: 042
  6. FLUDARABINE [Suspect]
     Active Substance: FLUDARABINE PHOSPHATE
     Indication: Blast crisis in myelogenous leukaemia
  7. FLUDARABINE [Suspect]
     Active Substance: FLUDARABINE PHOSPHATE
     Indication: Leukaemia cutis
  8. CYTARABINE [Suspect]
     Active Substance: CYTARABINE
     Indication: Blast cell crisis
     Dosage: 2 GRAM PER SQUARE METRE, CYCLE (2 G/M2 DAYS 1 TO 4), CYCLE
     Route: 042
  9. CYTARABINE [Suspect]
     Active Substance: CYTARABINE
     Indication: Blast crisis in myelogenous leukaemia
  10. CYTARABINE [Suspect]
     Active Substance: CYTARABINE
     Indication: Leukaemia cutis
  11. IDARUBICIN [Suspect]
     Active Substance: IDARUBICIN
     Indication: Blast cell crisis
     Dosage: 10 MILLIGRAM/SQ. METER, (ON DAYS 1-3), CYCLE
     Route: 042
  12. IDARUBICIN [Suspect]
     Active Substance: IDARUBICIN
     Indication: Blast crisis in myelogenous leukaemia
     Dosage: UNK, 10 MILLIGRAM/SQ. METER (ON DAYS 1-3)
     Route: 042
  13. IDARUBICIN [Suspect]
     Active Substance: IDARUBICIN
     Indication: Leukaemia cutis
  14. HYDREA [Suspect]
     Active Substance: HYDROXYUREA
     Indication: Blast cell crisis
     Dosage: UNK UNK, CYCLE
     Route: 065
  15. HYDREA [Suspect]
     Active Substance: HYDROXYUREA
     Indication: Blast crisis in myelogenous leukaemia
  16. HYDREA [Suspect]
     Active Substance: HYDROXYUREA
     Indication: Leukaemia cutis

REACTIONS (9)
  - Thrombocytopenia [Recovered/Resolved]
  - Neutropenia [Recovered/Resolved]
  - Cytomegalovirus infection [Recovered/Resolved]
  - Cytomegalovirus infection reactivation [Recovering/Resolving]
  - Bronchopulmonary aspergillosis [Recovered/Resolved]
  - Staphylococcal infection [Recovered/Resolved]
  - Pyrexia [Recovered/Resolved]
  - Diarrhoea [Unknown]
  - Drug ineffective [Unknown]
